FAERS Safety Report 4910263-1 (Version None)
Quarter: 2006Q1

REPORT INFORMATION
  Report Type: 
  Country: None (occurrence: None)
  Receive Date: 20060213
  Receipt Date: 20051109
  Transmission Date: 20060701
  Serious: Yes (Hospitalization)
  Sender: FDA-Public Use
  Company Number: US-MERCK-0511USA01889

PATIENT
  Age: 68 Year
  Sex: Male
  Weight: 95 kg

DRUGS (3)
  1. VIOXX [Suspect]
     Indication: PAIN
     Route: 048
     Dates: start: 20010412, end: 20040806
  2. VIOXX [Suspect]
     Indication: SPONDYLITIS
     Route: 048
     Dates: start: 20010412, end: 20040806
  3. ASPIRIN [Concomitant]
     Route: 065

REACTIONS (6)
  - ANXIETY [None]
  - CORONARY ARTERY DISEASE [None]
  - HAEMATOMA [None]
  - HEADACHE [None]
  - MYOCARDIAL INFARCTION [None]
  - PALPITATIONS [None]
